FAERS Safety Report 6809223-5 (Version None)
Quarter: 2010Q2

REPORT INFORMATION
  Report Type: 
  Country: None (occurrence: None)
  Receive Date: 20100630
  Receipt Date: 20100622
  Transmission Date: 20101027
  Serious: No
  Sender: FDA-Public Use
  Company Number: US-BIOGENIDEC-2010BI021479

PATIENT
  Age: 61 Year
  Sex: Female

DRUGS (2)
  1. AVONEX [Suspect]
     Indication: MULTIPLE SCLEROSIS
     Route: 030
     Dates: start: 20010817
  2. AVONEX [Suspect]
     Route: 030
     Dates: start: 20030917

REACTIONS (4)
  - ALOPECIA [None]
  - ALVEOLAR OSTEITIS [None]
  - DEPRESSION [None]
  - MEMORY IMPAIRMENT [None]
